FAERS Safety Report 19753981 (Version 1)
Quarter: 2021Q3

REPORT INFORMATION
  Report Type: Spontaneous
  Country: US (occurrence: US)
  Receive Date: 20210827
  Receipt Date: 20210827
  Transmission Date: 20211014
  Serious: Yes (Life-Threatening, Other)
  Sender: FDA-Public Use
  Company Number: None

PATIENT
  Age: 72 Year
  Weight: 109.8 kg

DRUGS (6)
  1. FLAXSEED [Concomitant]
     Active Substance: FLAX SEED
  2. PROZAC [Concomitant]
     Active Substance: FLUOXETINE HYDROCHLORIDE
  3. LOVASTATIN. [Concomitant]
     Active Substance: LOVASTATIN
  4. FISH OIL [Concomitant]
     Active Substance: FISH OIL
  5. VITAMINS B1, C, D3 [Concomitant]
  6. REPATHA [Suspect]
     Active Substance: EVOLOCUMAB
     Indication: HIGH DENSITY LIPOPROTEIN INCREASED
     Dosage: ?          QUANTITY:2 INJECTION(S);OTHER FREQUENCY:2/MONTH;?
     Route: 030
     Dates: start: 20210816, end: 20210816

REACTIONS (9)
  - Nasal discomfort [None]
  - Lacrimation increased [None]
  - Visual acuity reduced [None]
  - Sinus pain [None]
  - Nasal congestion [None]
  - Cough [None]
  - Near death experience [None]
  - Pulmonary congestion [None]
  - Sinus congestion [None]

NARRATIVE: CASE EVENT DATE: 20210816
